FAERS Safety Report 4278859-0 (Version None)
Quarter: 2004Q1

REPORT INFORMATION
  Report Type: 
  Country: None (occurrence: None)
  Receive Date: 20040122
  Receipt Date: 20040122
  Transmission Date: 20041129
  Serious: Yes (Life-Threatening, Hospitalization)
  Sender: FDA-Public Use
  Company Number: None

PATIENT
  Age: 34 Day
  Sex: Female
  Weight: 5.96 kg

DRUGS (2)
  1. CARBOPLATIN [Suspect]
     Indication: NEUROBLASTOMA
     Dosage: 97 MG DAY 1 INTRAVENOUS
     Route: 042
     Dates: start: 20040114, end: 20040114
  2. ETOPOSIDE [Suspect]
     Indication: NEUROBLASTOMA
     Dosage: 22 MG DAYS 1-3 INTRAVENOUS
     Route: 042
     Dates: start: 20040114, end: 20040116

REACTIONS (14)
  - BLOOD CREATININE INCREASED [None]
  - BLOOD UREA INCREASED [None]
  - BLOOD URIC ACID INCREASED [None]
  - BODY TEMPERATURE INCREASED [None]
  - CULTURE URINE POSITIVE [None]
  - ENTEROBACTER INFECTION [None]
  - GENERAL PHYSICAL HEALTH DETERIORATION [None]
  - GRUNTING [None]
  - HYPERPHOSPHATAEMIA [None]
  - HYPOCALCAEMIA [None]
  - LIVEDO RETICULARIS [None]
  - OXYGEN SATURATION DECREASED [None]
  - PALLOR [None]
  - TUMOUR LYSIS SYNDROME [None]
